FAERS Safety Report 17561379 (Version 4)
Quarter: 2020Q4

REPORT INFORMATION
  Report Type: Spontaneous
  Country: US (occurrence: US)
  Receive Date: 20200319
  Receipt Date: 20201016
  Transmission Date: 20210113
  Serious: No
  Sender: FDA-Public Use
  Company Number: US-VERTEX PHARMACEUTICALS-2020-005854

PATIENT
  Age: 18 Year
  Sex: Female
  Weight: 49 kg

DRUGS (1)
  1. TRIKAFTA [Suspect]
     Active Substance: ELEXACAFTOR\IVACAFTOR\TEZACAFTOR
     Indication: CYSTIC FIBROSIS
     Dosage: 2 TABS EVERY MORNING, BID
     Route: 048
     Dates: start: 20191210

REACTIONS (2)
  - Cough [Recovering/Resolving]
  - Polymenorrhoea [Not Recovered/Not Resolved]

NARRATIVE: CASE EVENT DATE: 202001
